FAERS Safety Report 6288038-3 (Version None)
Quarter: 2009Q3

REPORT INFORMATION
  Report Type: 
  Country: None (occurrence: None)
  Receive Date: 20090729
  Receipt Date: 20090720
  Transmission Date: 20100115
  Serious: Yes (Other)
  Sender: FDA-Public Use
  Company Number: US-JNJFOC-20090706983

PATIENT
  Sex: Female
  Weight: 60.33 kg

DRUGS (3)
  1. REMICADE [Suspect]
     Dosage: TOOK FOR 3 YEARS
     Route: 042
  2. REMICADE [Suspect]
     Route: 042
  3. REMICADE [Suspect]
     Indication: RHEUMATOID ARTHRITIS
     Route: 042

REACTIONS (1)
  - LUPUS-LIKE SYNDROME [None]
